FAERS Safety Report 18031787 (Version 2)
Quarter: 2020Q3

REPORT INFORMATION
  Report Type: Spontaneous
  Country: US (occurrence: US)
  Receive Date: 20200716
  Receipt Date: 20200807
  Transmission Date: 20201103
  Serious: No
  Sender: FDA-Public Use
  Company Number: US-BAUSCH-BL-2020-018652

PATIENT
  Age: 74 Year
  Sex: Female
  Weight: 67.19 kg

DRUGS (2)
  1. DORZOLAMIDE HYDROCHLORIDE AND TIMOLOL MALEATE OPHTHALMIC SOLN 2%/0.5% [Suspect]
     Active Substance: DORZOLAMIDE HYDROCHLORIDE\TIMOLOL MALEATE
     Indication: GLAUCOMA
     Dosage: 1 GTT IN THE LEFT EYE TWICE DAILY
     Route: 047
     Dates: start: 2015, end: 20200624
  2. THERATEARS [Concomitant]
     Active Substance: CARBOXYMETHYLCELLULOSE SODIUM
     Indication: PRODUCT USED FOR UNKNOWN INDICATION
     Dosage: AS NEEDED
     Route: 047

REACTIONS (6)
  - Eyelid exfoliation [Recovering/Resolving]
  - Eyelid skin dryness [Recovering/Resolving]
  - Conjunctivitis [Recovering/Resolving]
  - Visual impairment [Recovering/Resolving]
  - Eyelid ptosis [Recovering/Resolving]
  - Drug hypersensitivity [Recovering/Resolving]

NARRATIVE: CASE EVENT DATE: 202005
